FAERS Safety Report 24855928 (Version 2)
Quarter: 2025Q1

REPORT INFORMATION
  Report Type: Report from Study
  Country: IN (occurrence: IN)
  Receive Date: 20250117
  Receipt Date: 20250219
  Transmission Date: 20250408
  Serious: Yes (Death, Other)
  Sender: ROCHE
  Company Number: IN-ROCHE-10000101312

PATIENT
  Age: 61 Year
  Sex: Male

DRUGS (1)
  1. TECENTRIQ [Suspect]
     Active Substance: ATEZOLIZUMAB
     Indication: Hepatocellular carcinoma
     Route: 040
     Dates: start: 20240704

REACTIONS (6)
  - Platelet count decreased [Unknown]
  - Hepatic failure [Unknown]
  - Ammonia increased [Unknown]
  - Hypophagia [Unknown]
  - Infection [Fatal]
  - Investigation abnormal [Fatal]

NARRATIVE: CASE EVENT DATE: 20250114
